FAERS Safety Report 24122416 (Version 1)
Quarter: 2024Q3

REPORT INFORMATION
  Report Type: Spontaneous
  Country: US (occurrence: US)
  Receive Date: 20240723
  Receipt Date: 20240723
  Transmission Date: 20241016
  Serious: No
  Sender: TRAVERE THERAPEUTICS
  Company Number: US-TRAVERE-2024TVT00575

PATIENT
  Sex: Male

DRUGS (2)
  1. FILSPARI [Suspect]
     Active Substance: SPARSENTAN
     Indication: IgA nephropathy
     Route: 048
     Dates: start: 202309
  2. FILSPARI [Suspect]
     Active Substance: SPARSENTAN
     Dosage: ON 15-MAY-2024, PATIENT RECEIVED THE LAST SHIPMENT FOR FILSPARI.
     Route: 048

REACTIONS (1)
  - Proteinuria [Unknown]
